FAERS Safety Report 20921160 (Version 3)
Quarter: 2022Q3

REPORT INFORMATION
  Report Type: Report from Study
  Country: US (occurrence: US)
  Receive Date: 20220606
  Receipt Date: 20220810
  Transmission Date: 20221027
  Serious: Yes (Hospitalization, Other)
  Sender: FDA-Public Use
  Company Number: US-BAYER-2022A063942

PATIENT
  Age: 59 Year
  Sex: Female
  Weight: 68.027 kg

DRUGS (4)
  1. ADEMPAS [Suspect]
     Active Substance: RIOCIGUAT
     Indication: Pulmonary hypertension
     Dosage: 0.5 MG
     Dates: start: 20220418
  2. ADEMPAS [Suspect]
     Active Substance: RIOCIGUAT
     Indication: Pulmonary arterial hypertension
     Dosage: 1 MG, TID
     Route: 048
     Dates: start: 202205
  3. ADEMPAS [Suspect]
     Active Substance: RIOCIGUAT
     Indication: Pulmonary hypertension
     Dosage: 1.5 MG, TID
     Route: 048
  4. LASIX [Concomitant]
     Active Substance: FUROSEMIDE

REACTIONS (11)
  - Hospitalisation [Not Recovered/Not Resolved]
  - Ascites [None]
  - Orthostatic hypotension [Not Recovered/Not Resolved]
  - Oedema [None]
  - Diarrhoea [Recovered/Resolved]
  - Peripheral swelling [None]
  - Dizziness [None]
  - Oedema peripheral [None]
  - Arthralgia [Not Recovered/Not Resolved]
  - Pain in extremity [None]
  - Blood pressure decreased [None]

NARRATIVE: CASE EVENT DATE: 20220513
